FAERS Safety Report 12509549 (Version 2)
Quarter: 2016Q3

REPORT INFORMATION
  Report Type: Spontaneous
  Country: US (occurrence: US)
  Receive Date: 20160629
  Receipt Date: 20160923
  Transmission Date: 20161109
  Serious: No
  Sender: FDA-Public Use
  Company Number: US-BEH-2016070480

PATIENT
  Sex: Male
  Weight: 66.67 kg

DRUGS (19)
  1. SYMBICORT [Concomitant]
     Active Substance: BUDESONIDE\FORMOTEROL FUMARATE DIHYDRATE
  2. THEOPHYLLINE [Concomitant]
     Active Substance: THEOPHYLLINE ANHYDROUS
  3. NYSTATIN. [Concomitant]
     Active Substance: NYSTATIN
  4. FORADIL [Concomitant]
     Active Substance: FORMOTEROL FUMARATE
  5. NORCO [Concomitant]
     Active Substance: ACETAMINOPHEN\HYDROCODONE BITARTRATE
  6. CLINDAMYCIN [Concomitant]
     Active Substance: CLINDAMYCIN\CLINDAMYCIN PHOSPHATE
  7. PROAIR HFA [Concomitant]
     Active Substance: ALBUTEROL SULFATE
  8. EPIPEN [Concomitant]
     Active Substance: EPINEPHRINE
  9. LMX                                /00033401/ [Concomitant]
  10. SPIRIVA [Concomitant]
     Active Substance: TIOTROPIUM BROMIDE MONOHYDRATE
  11. DIPHENHYDRAMINE. [Concomitant]
     Active Substance: DIPHENHYDRAMINE
  12. SODIUM CHLORIDE. [Concomitant]
     Active Substance: SODIUM CHLORIDE
  13. BENZONATATE. [Concomitant]
     Active Substance: BENZONATATE
  14. ZEMAIRA [Suspect]
     Active Substance: .ALPHA.1-PROTEINASE INHIBITOR HUMAN
     Indication: ALPHA-1 ANTI-TRYPSIN DEFICIENCY
     Dosage: 60 MG/KG, QW (963 MG/VL)
     Route: 042
  15. PROVENTIL [Concomitant]
     Active Substance: ALBUTEROL
  16. KETOCONAZOLE. [Concomitant]
     Active Substance: KETOCONAZOLE
  17. MOTRIN [Concomitant]
     Active Substance: IBUPROFEN
  18. PREDNISONE. [Concomitant]
     Active Substance: PREDNISONE
  19. OXYGEN. [Concomitant]
     Active Substance: OXYGEN

REACTIONS (4)
  - Respiratory tract congestion [Unknown]
  - Wheezing [Unknown]
  - Dyspnoea [Unknown]
  - Nasopharyngitis [Unknown]
